FAERS Safety Report 18545204 (Version 3)
Quarter: 2020Q4

REPORT INFORMATION
  Report Type: Report from Study
  Country: LB (occurrence: LB)
  Receive Date: 20201125
  Receipt Date: 20201208
  Transmission Date: 20210114
  Serious: Yes (Hospitalization)
  Sender: FDA-Public Use
  Company Number: LB-PFIZER INC-2020461862

PATIENT
  Age: 75 Year
  Sex: Female
  Weight: 85 kg

DRUGS (12)
  1. AVELUMAB [Suspect]
     Active Substance: AVELUMAB
     Indication: RECTAL ADENOCARCINOMA
     Dosage: 840 MG
     Route: 042
     Dates: start: 20200706
  2. TELMISARTAN AND HYDROCHLOROTHIAZIDE [Concomitant]
     Active Substance: HYDROCHLOROTHIAZIDE\TELMISARTAN
     Indication: HYPERTENSION
     Dosage: UNK UNK, 1X/DAY (40 MG-12.5 MG)
     Route: 048
  3. OXALIPLATIN. [Suspect]
     Active Substance: OXALIPLATIN
     Indication: RECTAL ADENOCARCINOMA
     Dosage: 170 MG
     Route: 042
     Dates: start: 20200706
  4. LEUCOVORIN. [Suspect]
     Active Substance: LEUCOVORIN
     Indication: RECTAL ADENOCARCINOMA
     Dosage: 800 MG
     Route: 042
     Dates: start: 20200706
  5. FLUOROURACIL. [Suspect]
     Active Substance: FLUOROURACIL
     Dosage: 4728 MG
     Route: 042
     Dates: start: 20200929, end: 20200929
  6. OXALIPLATIN. [Suspect]
     Active Substance: OXALIPLATIN
     Dosage: 167.45 MG
     Route: 042
     Dates: start: 20200929, end: 20200929
  7. ATORVASTATIN [Concomitant]
     Active Substance: ATORVASTATIN
     Indication: DYSLIPIDAEMIA
     Dosage: 10 MG, 1X/DAY
     Route: 048
  8. FLUOROURACIL. [Suspect]
     Active Substance: FLUOROURACIL
     Indication: RECTAL ADENOCARCINOMA
     Dosage: 4800 MG
     Route: 042
     Dates: start: 20200706
  9. TAMSULOSIN [Concomitant]
     Active Substance: TAMSULOSIN
     Indication: URINARY RETENTION
     Dosage: 0.4 MG, 1X/DAY
     Route: 048
     Dates: start: 20201102
  10. AVELUMAB [Suspect]
     Active Substance: AVELUMAB
     Dosage: 840 MG
     Route: 042
     Dates: start: 20200929, end: 20200929
  11. LEUCOVORIN. [Suspect]
     Active Substance: LEUCOVORIN
     Dosage: 788 MG
     Route: 042
     Dates: start: 20200929, end: 20200929
  12. BISOPROLOL [Concomitant]
     Active Substance: BISOPROLOL
     Indication: HYPERTENSION
     Dosage: 5 MG, 1X/DAY
     Route: 048

REACTIONS (2)
  - Gastrointestinal anastomotic leak [Recovered/Resolved]
  - Urinary retention [Recovered/Resolved]

NARRATIVE: CASE EVENT DATE: 20201110
